FAERS Safety Report 16635619 (Version 1)
Quarter: 2019Q3

REPORT INFORMATION
  Report Type: Spontaneous
  Country: US (occurrence: US)
  Receive Date: 20190613
  Receipt Date: 20190613
  Transmission Date: 20191004
  Serious: No
  Sender: FDA-Public Use
  Company Number: None

PATIENT

DRUGS (2)
  1. NITROPRUSSIDE SODIUM INJECTION 500MG/ML [Suspect]
     Active Substance: SODIUM NITROPRUSSIDE
  2. NITROGLYCERIN 200 MCG/ML [Suspect]
     Active Substance: NITROGLYCERIN

REACTIONS (2)
  - Product name confusion [None]
  - Product administration error [None]
